FAERS Safety Report 5080840-9 (Version None)
Quarter: 2006Q3

REPORT INFORMATION
  Report Type: 
  Country: None (occurrence: None)
  Receive Date: 20060811
  Receipt Date: 20060731
  Transmission Date: 20061208
  Serious: Yes (Other)
  Sender: FDA-Public Use
  Company Number: 2006094096

PATIENT
  Age: 2 Year
  Sex: Female

DRUGS (1)
  1. VISINE EYE DROPS [Suspect]
     Indication: ACCIDENTAL EXPOSURE
     Dosage: 23CC ONCE, ORAL
     Route: 048
     Dates: start: 20060730, end: 20060730

REACTIONS (3)
  - ACCIDENTAL DRUG INTAKE BY CHILD [None]
  - BLOOD PRESSURE DECREASED [None]
  - SOMNOLENCE [None]
